FAERS Safety Report 21271679 (Version 2)
Quarter: 2022Q4

REPORT INFORMATION
  Report Type: Spontaneous
  Country: US (occurrence: US)
  Receive Date: 20220830
  Receipt Date: 20221109
  Transmission Date: 20230112
  Serious: No
  Sender: FDA-Public Use
  Company Number: US-KARYOPHARM-2022KPT000848

PATIENT

DRUGS (8)
  1. XPOVIO [Suspect]
     Active Substance: SELINEXOR
     Indication: Malignant nervous system neoplasm
     Dosage: 80 MG, WEEKLY
     Route: 048
     Dates: start: 202207, end: 202210
  2. ALPRAZOLAM [Concomitant]
     Active Substance: ALPRAZOLAM
  3. IBRANCE [Concomitant]
     Active Substance: PALBOCICLIB
  4. METOPROLOL [Concomitant]
     Active Substance: METOPROLOL
  5. MUPIROCIN [Concomitant]
     Active Substance: MUPIROCIN
  6. NARCAN [Concomitant]
     Active Substance: NALOXONE HYDROCHLORIDE
  7. PREGABALIN [Concomitant]
     Active Substance: PREGABALIN
  8. ZOFRAN [Concomitant]
     Active Substance: ONDANSETRON HYDROCHLORIDE

REACTIONS (8)
  - Malignant nervous system neoplasm [Unknown]
  - Night sweats [Unknown]
  - Chest pain [Unknown]
  - Decreased appetite [Unknown]
  - Nausea [Unknown]
  - Weight decreased [Unknown]
  - Fatigue [Unknown]
  - Off label use [Unknown]

NARRATIVE: CASE EVENT DATE: 20220101
